FAERS Safety Report 15456502 (Version 1)
Quarter: 2018Q3

REPORT INFORMATION
  Report Type: Spontaneous
  Country: US (occurrence: US)
  Receive Date: 20180928
  Receipt Date: 20180928
  Transmission Date: 20181010
  Serious: Yes (Other)
  Sender: FDA-Public Use
  Company Number: None

PATIENT
  Age: 45 Year
  Sex: Male
  Weight: 74.25 kg

DRUGS (1)
  1. OCEAN SALINE NASAL SPRAY [Suspect]
     Active Substance: SODIUM CHLORIDE
     Indication: NASAL IRRIGATION
     Route: 055
     Dates: start: 20180913, end: 20180928

REACTIONS (6)
  - Sinusitis [None]
  - Respiratory tract congestion [None]
  - Dysphagia [None]
  - Infection [None]
  - Pyrexia [None]
  - Productive cough [None]

NARRATIVE: CASE EVENT DATE: 20180914
